FAERS Safety Report 7953952-7 (Version None)
Quarter: 2011Q4

REPORT INFORMATION
  Report Type: 
  Country: None (occurrence: None)
  Receive Date: 20111129
  Receipt Date: 20111114
  Transmission Date: 20120403
  Serious: Yes (Death)
  Sender: FDA-Public Use
  Company Number: 2011MA016419

PATIENT
  Age: 65 Year
  Sex: Female
  Weight: 65.318 kg

DRUGS (25)
  1. ASPIRIN [Concomitant]
  2. CIPROFLOXACIN [Concomitant]
  3. FUROSEMIDE [Concomitant]
  4. LISINOPRIL [Concomitant]
  5. LUNIGAN [Concomitant]
  6. MISOPROSTOL [Concomitant]
  7. NEURONTIN [Concomitant]
  8. POTASSIUM CHLORIDE [Concomitant]
  9. RESTASIS [Concomitant]
  10. DIGOXIN [Suspect]
     Indication: ATRIAL FIBRILLATION
     Dosage: 0.125 MG
     Dates: start: 19941206, end: 20071006
  11. CARISOPRODOL [Concomitant]
  12. FOLIC ACID [Concomitant]
  13. HYDROCODONE BITARTRATE AND ACETAMINOPHEN [Concomitant]
  14. PROPOXYPHENE HCL AND ACETAMINOPHEN [Concomitant]
  15. DOXYCYCLINE [Concomitant]
  16. GLYBURIDE [Concomitant]
  17. ATROPINE [Concomitant]
  18. COSPT [Concomitant]
  19. LOTEMAX [Concomitant]
  20. NOVOLIN INSULIN [Concomitant]
  21. PREVACID [Concomitant]
  22. CYMBALTA [Concomitant]
  23. LIPITOR [Concomitant]
  24. NAPROSYN [Concomitant]
  25. PREDNISOLONE [Concomitant]

REACTIONS (11)
  - SYNCOPE [None]
  - CAROTID ARTERY STENOSIS [None]
  - CORONARY ARTERY DISEASE [None]
  - HYPERLIPIDAEMIA [None]
  - BACK PAIN [None]
  - GINGIVAL INFECTION [None]
  - ATRIAL FIBRILLATION [None]
  - ECONOMIC PROBLEM [None]
  - HYPERTENSION [None]
  - MULTIPLE INJURIES [None]
  - TYPE 2 DIABETES MELLITUS [None]
